FAERS Safety Report 7228284-5 (Version None)
Quarter: 2011Q1

REPORT INFORMATION
  Report Type: 
  Country: None (occurrence: None)
  Receive Date: 20110114
  Receipt Date: 20110111
  Transmission Date: 20110831
  Serious: Yes (Other)
  Sender: FDA-Public Use
  Company Number: ES-PFIZER INC-2010150490

PATIENT
  Age: 55 Year
  Sex: Male
  Weight: 85.7 kg

DRUGS (12)
  1. SIROLIMUS [Suspect]
     Dosage: 2 MG, 1X/DAY
     Route: 048
     Dates: start: 20101017, end: 20101028
  2. PREDNISONE [Concomitant]
     Dosage: 15 MG, UNK
     Dates: start: 20101030, end: 20101104
  3. PROGRAF [Concomitant]
     Indication: IMMUNOSUPPRESSANT DRUG THERAPY
     Dosage: 2 MG, UNK
     Dates: start: 20101018, end: 20101025
  4. SIROLIMUS [Suspect]
     Indication: IMMUNOSUPPRESSANT DRUG THERAPY
     Dosage: 2 MG, 1X/DAY
     Route: 048
     Dates: start: 20100907, end: 20100912
  5. SIROLIMUS [Suspect]
     Dosage: 2MG ONE DAY, 2 MG THE NEXT DAY AND 3MG THE NEXT DAY, THEN REPEAT THE CYCLE
     Route: 048
     Dates: start: 20100913, end: 20100919
  6. SIROLIMUS [Suspect]
     Dosage: 2MG ONE DAY, 2 MG THE NEXT DAY AND 3MG THE NEXT DAY, THEN REPEAT CYCLE
     Route: 048
     Dates: start: 20101029, end: 20101121
  7. SIROLIMUS [Suspect]
     Dosage: 2MG ONE DAY, 3 MG THE NEXT DAY AND THEN REPEAT THE CYCLE
     Route: 048
     Dates: start: 20100920, end: 20101010
  8. SIROLIMUS [Suspect]
     Dosage: 2 MG, 1X/DAY
     Route: 048
     Dates: start: 20101122
  9. PREDNISONE [Concomitant]
     Dosage: 10 MG, UNK
     Dates: start: 20101105
  10. PREDNISONE [Concomitant]
     Indication: IMMUNOSUPPRESSANT DRUG THERAPY
     Dosage: 10 MG, UNK
     Dates: start: 20101019, end: 20101029
  11. MYCOPHENOLIC ACID [Concomitant]
     Dosage: 360 MG, UNK
     Dates: start: 20101025
  12. SIROLIMUS [Suspect]
     Dosage: 3 MG, 1X/DAY
     Route: 048
     Dates: start: 20101011, end: 20101013

REACTIONS (1)
  - BILIARY NEOPLASM [None]
